FAERS Safety Report 9860092 (Version 1)
Quarter: 2014Q1

REPORT INFORMATION
  Report Type: Spontaneous
  Country: US (occurrence: US)
  Receive Date: 20140201
  Receipt Date: 20140201
  Transmission Date: 20141002
  Serious: Yes (Death)
  Sender: FDA-Public Use
  Company Number: US-ROCHE-1343025

PATIENT
  Age: 60 Year
  Sex: Male
  Weight: 106.69 kg

DRUGS (2)
  1. XELODA [Suspect]
     Indication: NEOPLASM MALIGNANT
     Route: 048
     Dates: start: 20130627, end: 20130917
  2. XELODA [Suspect]
     Indication: GASTRIC DISORDER

REACTIONS (1)
  - Death [Fatal]
